FAERS Safety Report 19731838 (Version 2)
Quarter: 2021Q4

REPORT INFORMATION
  Report Type: Spontaneous
  Country: US (occurrence: US)
  Receive Date: 20210820
  Receipt Date: 20211009
  Transmission Date: 20220303
  Serious: Yes (Hospitalization, Other)
  Sender: FDA-Public Use
  Company Number: US-TEVA-2021-US-1943012

PATIENT
  Age: 68 Year
  Sex: Male

DRUGS (5)
  1. SOTALOL [Suspect]
     Active Substance: SOTALOL
     Indication: Atrial fibrillation
     Dosage: 160 MILLIGRAM DAILY; 24/26MG, ONCE EVERY 12 HRS
     Route: 065
     Dates: start: 20210708, end: 20210712
  2. ENTRESTO [Suspect]
     Active Substance: SACUBITRIL\VALSARTAN
     Dosage: 24/26MG
  3. XARELTO [Suspect]
     Active Substance: RIVAROXABAN
     Dosage: 10 MILLIGRAM DAILY;
     Route: 065
  4. CARVEDILOL [Concomitant]
     Active Substance: CARVEDILOL
     Dosage: 18.75 MILLIGRAM DAILY;
  5. FUROSEMIDE [Concomitant]
     Active Substance: FUROSEMIDE

REACTIONS (3)
  - Fracture [Unknown]
  - Cough [Not Recovered/Not Resolved]
  - Cardio-respiratory arrest [Recovered/Resolved]
